FAERS Safety Report 11881378 (Version 1)
Quarter: 2015Q4

REPORT INFORMATION
  Report Type: Spontaneous
  Country: PL (occurrence: PL)
  Receive Date: 20151231
  Receipt Date: 20151231
  Transmission Date: 20160305
  Serious: Yes (Life-Threatening, Hospitalization)
  Sender: FDA-Public Use
  Company Number: PHHY2015PL166533

PATIENT
  Age: 76 Year
  Sex: Female
  Weight: 40 kg

DRUGS (1)
  1. AMOKSIKLAV [Suspect]
     Active Substance: AMOXICILLIN\CLAVULANATE POTASSIUM
     Indication: PNEUMONIA
     Dosage: DOSE TO BE ADMINISTERED: 2 X 1.2 G
     Route: 042
     Dates: start: 20151028, end: 20151028

REACTIONS (5)
  - Anaphylactic shock [Recovering/Resolving]
  - Respiratory failure [Recovering/Resolving]
  - Blood pressure increased [Recovering/Resolving]
  - Tachycardia [Recovering/Resolving]
  - Bronchospasm [Recovering/Resolving]

NARRATIVE: CASE EVENT DATE: 20151028
